FAERS Safety Report 20976117 (Version 1)
Quarter: 2022Q2

REPORT INFORMATION
  Report Type: Spontaneous
  Country: US (occurrence: US)
  Receive Date: 20220617
  Receipt Date: 20220617
  Transmission Date: 20220721
  Serious: Yes (Hospitalization, Other)
  Sender: FDA-Public Use
  Company Number: US-ORGANON-O2206USA001046

PATIENT
  Age: 74 Year
  Sex: Male
  Weight: 86.2 kg

DRUGS (26)
  1. COZAAR [Suspect]
     Active Substance: LOSARTAN POTASSIUM
     Indication: Hypertension
     Dosage: 1 TABLET DAILY
     Route: 048
  2. ASCORBIC ACID [Concomitant]
     Active Substance: ASCORBIC ACID
  3. GUAIFENESIN [Concomitant]
     Active Substance: GUAIFENESIN
  4. INSULIN ASPART [Concomitant]
     Active Substance: INSULIN ASPART
  5. INSULIN ASPART PROTAMINE [Concomitant]
  6. ZINC SULFATE [Concomitant]
     Active Substance: ZINC SULFATE
  7. ZOVIRAX [Concomitant]
     Active Substance: ACYCLOVIR
     Dosage: 1 TABLET TWICE A DAY
     Route: 048
  8. ALBUTEROL SULFATE [Concomitant]
     Active Substance: ALBUTEROL SULFATE
     Dosage: 2 PUFFS EVERY 6 HOURS AS NEEDED; FORMULATION REPORTED AS INHALER
  9. NORVASC [Concomitant]
     Active Substance: AMLODIPINE BESYLATE
     Indication: Hypertension
     Dosage: 1 TABLET BY MOUTH DAILY
     Route: 048
  10. COENZYME Q10 [Concomitant]
     Active Substance: DIETARY SUPPLEMENT\UBIDECARENONE
     Indication: Arthralgia
     Dosage: 1 CAPSULE DAILY
     Route: 048
  11. VITAMINS NOS [Concomitant]
     Active Substance: VITAMINS
     Dosage: UNK, QD
     Route: 048
  12. VOLTAREN [Concomitant]
     Active Substance: DICLOFENAC SODIUM
     Dosage: APPLY 2 GMS IN THE MORNING, 2 GMS AT NOON, 2 GMS IN THE EVENING, 2 GMS BEFORE BED TIME TO AFFECTED A
  13. DULOXETINE [Concomitant]
     Active Substance: DULOXETINE
     Indication: Arthralgia
     Dosage: 1 CAPSULE DAILY
     Route: 048
  14. GLUCOSAMINE [Concomitant]
     Active Substance: GLUCOSAMINE
     Dosage: 900 MILLIGRAM
     Route: 048
  15. HUMALOG MIX50/50 [Concomitant]
     Active Substance: INSULIN LISPRO
     Dosage: 100 UNIT/ML, INJECT 25 UNITS BEFORE BREAKFAST ANS 25 TO 40 UNITS BEFORE DINNER
  16. DUONEB [Concomitant]
     Active Substance: ALBUTEROL SULFATE\IPRATROPIUM BROMIDE
     Indication: Dyspnoea
     Dosage: 3 MILLILITER EVERY 6 HOURS
  17. PANTOPRAZOLE [Concomitant]
     Active Substance: PANTOPRAZOLE
     Indication: Gastrooesophageal reflux disease
     Dosage: 40 MILLIGRAM
  18. POMALYST [Concomitant]
     Active Substance: POMALIDOMIDE
     Dosage: 1 CAPSULE DAILY ON DAYS 1 THROUGH 21 OF A 28 DAY CYCLE
     Route: 048
  19. KENALOG [Concomitant]
     Active Substance: TRIAMCINOLONE ACETONIDE
     Dosage: APPLY TO AFFECTED AREAS SPARINGLY AND RUB IN WELL TWICE DAILY
     Route: 061
  20. JARDIANCE [Concomitant]
     Active Substance: EMPAGLIFLOZIN
     Indication: Type 2 diabetes mellitus
     Dosage: 1 TABLET DAILY EARLY MORNING
     Route: 048
  21. DECADRON [Concomitant]
     Active Substance: DEXAMETHASONE
     Dosage: 5 TABLETS EVERY 7 DAYS
  22. PLAVIX [Concomitant]
     Active Substance: CLOPIDOGREL BISULFATE
     Indication: Carotid artery stenosis
     Dosage: 1 TABLET, QD
     Route: 048
  23. MEPRON [Concomitant]
     Active Substance: ATOVAQUONE
     Dosage: 5 MILLILITER, QD (750 MG/5 ML)
     Route: 048
  24. CYMBALTA [Concomitant]
     Active Substance: DULOXETINE HYDROCHLORIDE
     Dosage: 1 CAPSULE DAILY
     Route: 048
  25. PROTONIX [Concomitant]
     Active Substance: PANTOPRAZOLE SODIUM
     Dosage: 1 TABLET TWICE A DAY 30 MIN BEFORE BREAKFAST AND DINNER
     Route: 048
  26. CHERATUSSIN AC [Concomitant]
     Active Substance: CODEINE PHOSPHATE\GUAIFENESIN
     Indication: Cough
     Dosage: 10 MILLILITER, Q6H

REACTIONS (1)
  - COVID-19 pneumonia [Recovering/Resolving]

NARRATIVE: CASE EVENT DATE: 20220101
